FAERS Safety Report 7512509-2 (Version None)
Quarter: 2011Q2

REPORT INFORMATION
  Report Type: 
  Country: None (occurrence: None)
  Receive Date: 20110525
  Receipt Date: 20110525
  Transmission Date: 20111010
  Serious: No
  Sender: FDA-Public Use
  Company Number: None

PATIENT
  Sex: Female
  Weight: 62.1428 kg

DRUGS (2)
  1. SOMA [Suspect]
     Dosage: 350 1 TID ORAL
     Route: 048
  2. VICODIN ES [Suspect]
     Dosage: 1 QID ORAL

REACTIONS (6)
  - CHAPPED LIPS [None]
  - DYSKINESIA [None]
  - CONVULSION [None]
  - RASH [None]
  - PRODUCT SUBSTITUTION ISSUE [None]
  - SWELLING FACE [None]
